FAERS Safety Report 25138043 (Version 1)
Quarter: 2025Q1

REPORT INFORMATION
  Report Type: Spontaneous
  Country: GB (occurrence: GB)
  Receive Date: 20250329
  Receipt Date: 20250329
  Transmission Date: 20250408
  Serious: Yes (Other)
  Sender: DR REDDYS
  Company Number: None

PATIENT
  Age: 81 Year
  Sex: Male
  Weight: 84 kg

DRUGS (22)
  1. OMEPRAZOLE [Suspect]
     Active Substance: OMEPRAZOLE
     Indication: Ill-defined disorder
     Dosage: TAKE ONE TWICE A DAY
     Dates: start: 20230628, end: 20250106
  2. MINERAL OIL\PARAFFIN [Concomitant]
     Active Substance: MINERAL OIL\PARAFFIN
     Indication: Ill-defined disorder
     Dates: start: 20250207, end: 20250307
  3. FOSFOMYCIN [Concomitant]
     Active Substance: FOSFOMYCIN
     Indication: Ill-defined disorder
     Dates: start: 20250207, end: 20250210
  4. DICLOFENAC SODIUM [Concomitant]
     Active Substance: DICLOFENAC SODIUM
     Indication: Back pain
     Dates: start: 20250214, end: 20250228
  5. ALGINATE [Concomitant]
     Indication: Ill-defined disorder
     Dates: start: 20250317
  6. ALLOPURINOL [Concomitant]
     Active Substance: ALLOPURINOL
     Indication: Ill-defined disorder
     Dosage: ONE TO BE TAKEN EVERY DAY
     Dates: start: 20230628
  7. ATORVASTATIN [Concomitant]
     Active Substance: ATORVASTATIN
     Indication: Blood cholesterol
     Dosage: ONE TO BE TAKEN DAILY TO LOWER CHOLESTEROL
     Dates: start: 20230628
  8. BUMETANIDE [Concomitant]
     Active Substance: BUMETANIDE
     Indication: Ill-defined disorder
     Dosage: ONE TABLETS IN THE MORNING
     Dates: start: 20230628
  9. CARVEDILOL [Concomitant]
     Active Substance: CARVEDILOL
     Indication: Ill-defined disorder
     Dosage: 1 TABLET AT NIGHT
     Dates: start: 20230628
  10. FINASTERIDE [Concomitant]
     Active Substance: FINASTERIDE
     Indication: Prostatomegaly
     Dosage: ONE TABLET DAILY TO REDUCE SIZE OF PROSTATE
     Dates: start: 20230628
  11. LATANOPROST [Concomitant]
     Active Substance: LATANOPROST
     Indication: Glaucoma
     Dates: start: 20230628
  12. ACETAMINOPHEN [Concomitant]
     Active Substance: ACETAMINOPHEN
     Indication: Pain
     Dates: start: 20230628
  13. DAPAGLIFLOZIN [Concomitant]
     Active Substance: DAPAGLIFLOZIN
     Indication: Ill-defined disorder
     Dosage: TAKE ONE DAILY
     Dates: start: 20230831
  14. RIVAROXABAN [Concomitant]
     Active Substance: RIVAROXABAN
     Indication: Ill-defined disorder
     Dosage: ONE TABLET ONCE DAILY (WITH LARGEST MEAL OF THE...
     Dates: start: 20240214
  15. GABAPENTIN [Concomitant]
     Active Substance: GABAPENTIN
     Indication: Ill-defined disorder
     Dosage: TWO CAPSULES THREE TIMES A DAY
     Dates: start: 20240507
  16. DORZOLAMIDE [Concomitant]
     Active Substance: DORZOLAMIDE
     Indication: Ill-defined disorder
     Dosage: ONE DROP TWICE DAILY
     Dates: start: 20240624
  17. SENNA [Concomitant]
     Active Substance: SENNOSIDES
     Indication: Ill-defined disorder
     Dates: start: 20240806
  18. TAMSULOSIN HYDROCHLORIDE [Concomitant]
     Active Substance: TAMSULOSIN HYDROCHLORIDE
     Indication: Ill-defined disorder
     Dosage: TAKE ONE CAPSULE ONCE A DAY
     Dates: start: 20240806
  19. AMITRIPTYLINE HYDROCHLORIDE [Concomitant]
     Active Substance: AMITRIPTYLINE HYDROCHLORIDE
     Indication: Pain
     Dosage: TAKE ONE AT NIGHT FOR PAIN
     Dates: start: 20241014
  20. ROTIGOTINE [Concomitant]
     Active Substance: ROTIGOTINE
     Indication: Ill-defined disorder
     Dates: start: 20241204
  21. FERROUS FUMARATE [Concomitant]
     Active Substance: FERROUS FUMARATE
     Indication: Ill-defined disorder
     Dates: start: 20241224
  22. LAMOTRIGINE [Concomitant]
     Active Substance: LAMOTRIGINE
     Indication: Epilepsy
     Dates: start: 20250121

REACTIONS (2)
  - Blood magnesium decreased [Unknown]
  - Seizure [Recovered/Resolved]

NARRATIVE: CASE EVENT DATE: 20250106
